FAERS Safety Report 7343180-0 (Version None)
Quarter: 2011Q1

REPORT INFORMATION
  Report Type: 
  Country: None (occurrence: None)
  Receive Date: 20110310
  Receipt Date: 20110228
  Transmission Date: 20110831
  Serious: Yes (Hospitalization, Other)
  Sender: FDA-Public Use
  Company Number: PHHY2010JP43260

PATIENT
  Age: 51 Year
  Sex: Male

DRUGS (11)
  1. SANDIMMUNE [Suspect]
     Indication: RENAL TRANSPLANT
     Dosage: 150 MG, UNK
     Route: 041
     Dates: start: 20040101, end: 20040101
  2. STEROIDS NOS [Suspect]
     Indication: RENAL TRANSPLANT
  3. NEORAL [Suspect]
     Indication: RENAL TRANSPLANT
     Dosage: 500 MG, UNK
     Route: 048
     Dates: start: 20040401, end: 20040401
  4. MIZORIBINE [Concomitant]
  5. SANDIMMUNE [Suspect]
     Dosage: 180 MG, UNK
     Route: 041
     Dates: start: 20040101, end: 20040101
  6. SIMULECT [Concomitant]
     Indication: RENAL TRANSPLANT
     Dosage: 20 MG, UNK
     Route: 042
     Dates: start: 20040401
  7. NEORAL [Suspect]
     Dosage: 500 MG, UNK
     Route: 048
     Dates: start: 20040501, end: 20040501
  8. CELLCEPT [Suspect]
     Indication: RENAL TRANSPLANT
     Dosage: UNK
     Dates: start: 20040401
  9. TACROLIMUS [Concomitant]
  10. MEDROL [Concomitant]
     Indication: RENAL TRANSPLANT
     Dosage: UNK
     Dates: start: 20040401
  11. SANDIMMUNE [Suspect]
     Dosage: 120 MG, UNK
     Route: 041
     Dates: start: 20040101, end: 20040101

REACTIONS (5)
  - TUBULOINTERSTITIAL NEPHRITIS [None]
  - POLYOMAVIRUS-ASSOCIATED NEPHROPATHY [None]
  - RENAL IMPAIRMENT [None]
  - BLOOD CREATININE INCREASED [None]
  - NEPHROPATHY TOXIC [None]
